FAERS Safety Report 5557947-2 (Version None)
Quarter: 2007Q4

REPORT INFORMATION
  Report Type: 
  Country: None (occurrence: None)
  Receive Date: 20071130
  Receipt Date: 20070824
  Transmission Date: 20080405
  Serious: No
  Sender: FDA-Public Use
  Company Number: US200708005754

PATIENT
  Age: 67 Year
  Sex: Male
  Weight: 156.5 kg

DRUGS (8)
  1. BYETTA [Suspect]
     Indication: TYPE 2 DIABETES MELLITUS
     Dosage: 5 UG, 2/D, SUBCUTANEOUS, 10 UG, 2/D SUBCUTANEOUS
     Route: 058
     Dates: start: 20061101, end: 20061201
  2. BYETTA [Suspect]
     Indication: TYPE 2 DIABETES MELLITUS
     Dosage: 5 UG, 2/D, SUBCUTANEOUS, 10 UG, 2/D SUBCUTANEOUS
     Route: 058
     Dates: start: 20061201
  3. LANTUS [Concomitant]
  4. GLUCOPHAGE [Concomitant]
  5. GLIPIZIDE [Concomitant]
  6. INSULIN, REGULAR (INSULIN) [Concomitant]
  7. INDERAL [Concomitant]
  8. ZETIA [Concomitant]

REACTIONS (6)
  - ASTHENIA [None]
  - BLOOD TESTOSTERONE DECREASED [None]
  - FATIGUE [None]
  - HYPOTONIA [None]
  - VISUAL ACUITY REDUCED [None]
  - WEIGHT DECREASED [None]
